FAERS Safety Report 10015243 (Version 2)
Quarter: 2014Q1

REPORT INFORMATION
  Report Type: Spontaneous
  Country: US (occurrence: US)
  Receive Date: 20140317
  Receipt Date: 20140320
  Transmission Date: 20141002
  Serious: No
  Sender: FDA-Public Use
  Company Number: US-PFIZER INC-2014073679

PATIENT
  Age: 55 Year
  Sex: Female

DRUGS (7)
  1. SUTENT [Suspect]
     Dosage: 50 MG, DAILY, CYCLIC (FOR 4 WEEKS ON AND TWO WEEKS OFF)
     Dates: start: 20140221
  2. LISINOPRIL [Concomitant]
     Indication: HYPERTENSION
     Dosage: UNK
  3. METFORMIN [Concomitant]
     Indication: DIABETES MELLITUS
     Dosage: UNK
  4. POTASSIUM CHLORIDE [Concomitant]
     Dosage: UNK
  5. TRAMADOL [Concomitant]
     Dosage: UNK
  6. LORATADINE [Concomitant]
     Indication: HYPERSENSITIVITY
     Dosage: UNK
  7. BIOTIN [Concomitant]
     Indication: SUPPLEMENTATION THERAPY
     Dosage: UNK

REACTIONS (5)
  - Gingival pain [Not Recovered/Not Resolved]
  - Dry mouth [Not Recovered/Not Resolved]
  - Dry skin [Not Recovered/Not Resolved]
  - Oral pain [Unknown]
  - Diarrhoea [Unknown]
